FAERS Safety Report 7746752-4 (Version None)
Quarter: 2011Q3

REPORT INFORMATION
  Report Type: 
  Country: None (occurrence: None)
  Receive Date: 20110907
  Receipt Date: 20110812
  Transmission Date: 20111222
  Serious: Yes (Hospitalization)
  Sender: FDA-Public Use
  Company Number: JP-006117

PATIENT
  Sex: Male
  Weight: 76.5 kg

DRUGS (11)
  1. ALISKIREN [Concomitant]
  2. CARVEDILOL [Concomitant]
  3. CILOSTAZOL [Concomitant]
  4. ITAVASTATIN CALCIUM [Concomitant]
  5. DEGARELIX (DEGARELIX) (240 MG, 360 MG) [Suspect]
     Indication: PROSTATE CANCER
     Dosage: (240 MG 1X SUBCUTANEOUS), (360 MG 1X/3 MONTHS SUBCUTANEOUS)
     Route: 058
     Dates: start: 20110301
  6. DEGARELIX (DEGARELIX) (240 MG, 360 MG) [Suspect]
     Indication: PROSTATE CANCER
     Dosage: (240 MG 1X SUBCUTANEOUS), (360 MG 1X/3 MONTHS SUBCUTANEOUS)
     Route: 058
     Dates: start: 20110201, end: 20110201
  7. NIFEDIPINE [Concomitant]
  8. TAMSULOSIN HCL [Concomitant]
  9. FAMOTIDINE [Concomitant]
  10. ACETYLSALICYLIC ACID SRT [Concomitant]
  11. LOSARTAN POTASSIUM AND HYDROCHLOROTHIAZIDE [Concomitant]

REACTIONS (3)
  - RENAL FAILURE ACUTE [None]
  - DEHYDRATION [None]
  - DECREASED APPETITE [None]
